FAERS Safety Report 9192175 (Version 2)
Quarter: 2013Q2

REPORT INFORMATION
  Report Type: Spontaneous
  Country: US (occurrence: None)
  Receive Date: 20120703
  Receipt Date: 20130107
  Transmission Date: 20140414
  Serious: Yes (Other)
  Sender: FDA-Public Use
  Company Number: PHEH2012US006509

PATIENT
  Age: 40 Year
  Sex: Female

DRUGS (1)
  1. GILENYA (FTY) [Suspect]
     Indication: MULTIPLE SCLEROSIS
     Route: 048
     Dates: start: 201011

REACTIONS (5)
  - Multiple sclerosis relapse [None]
  - Stress [None]
  - Nasopharyngitis [None]
  - Bone pain [None]
  - Skin burning sensation [None]
